FAERS Safety Report 8004954-6 (Version None)
Quarter: 2011Q4

REPORT INFORMATION
  Report Type: 
  Country: None (occurrence: None)
  Receive Date: 20111223
  Receipt Date: 20111215
  Transmission Date: 20120403
  Serious: Yes (Life-Threatening, Hospitalization, Other)
  Sender: FDA-Public Use
  Company Number: CA-JNJFOC-20111103674

PATIENT
  Age: 72 Year
  Sex: Female
  Weight: 69.8 kg

DRUGS (5)
  1. REMICADE [Suspect]
     Indication: ANKYLOSING SPONDYLITIS
     Dosage: 5.0
     Route: 042
  2. REMICADE [Suspect]
     Route: 042
  3. COUMADIN [Suspect]
     Indication: ATRIAL FIBRILLATION
     Dosage: DOSE ADJUSTED PER INR
     Route: 048
     Dates: start: 20030601, end: 20111110
  4. REMICADE [Suspect]
     Dosage: 5.0
     Route: 042
  5. COUMADIN [Suspect]
     Indication: CARDIAC ASSISTANCE DEVICE USER
     Dosage: DOSE ADJUSTED PER INR
     Route: 048
     Dates: start: 20030601, end: 20111110

REACTIONS (4)
  - CEREBROVASCULAR ACCIDENT [None]
  - DIVERTICULITIS [None]
  - RECTAL HAEMORRHAGE [None]
  - PLEURAL EFFUSION [None]
